FAERS Safety Report 8091935-X (Version None)
Quarter: 2012Q1

REPORT INFORMATION
  Report Type: 
  Country: None (occurrence: None)
  Receive Date: 20120125
  Receipt Date: 20120120
  Transmission Date: 20120608
  Serious: Yes (Other)
  Sender: FDA-Public Use
  Company Number: ADR-2009-7621

PATIENT
  Sex: Female

DRUGS (2)
  1. LIORESAL [Suspect]
     Indication: MUSCLE SPASTICITY
     Dosage: SEE B5 MCG, DAILY, INTR
     Route: 037
  2. LIORESAL [Suspect]
     Indication: MULTIPLE SCLEROSIS
     Dosage: SEE B5 MCG, DAILY, INTR
     Route: 037

REACTIONS (5)
  - DEVICE DISLOCATION [None]
  - CONDITION AGGRAVATED [None]
  - PAIN [None]
  - MUSCLE SPASTICITY [None]
  - MASS [None]
